FAERS Safety Report 17476337 (Version 1)
Quarter: 2020Q1

REPORT INFORMATION
  Report Type: Report from Study
  Country: CA (occurrence: CA)
  Receive Date: 20200228
  Receipt Date: 20200228
  Transmission Date: 20200409
  Serious: Yes (Other)
  Sender: FDA-Public Use
  Company Number: CA-JNJFOC-20190126362

PATIENT
  Age: 47 Year
  Sex: Female
  Weight: 92 kg

DRUGS (1)
  1. STELARA [Suspect]
     Active Substance: USTEKINUMAB
     Indication: CROHN^S DISEASE
     Dosage: STRENGTH = 90 MG
     Route: 058

REACTIONS (16)
  - Pruritus [Unknown]
  - Off label use [Unknown]
  - Drug ineffective [Unknown]
  - Asthma [Unknown]
  - Pain [Unknown]
  - Body temperature increased [Unknown]
  - Protein total increased [Recovered/Resolved]
  - Crohn^s disease [Not Recovered/Not Resolved]
  - Night sweats [Unknown]
  - Colitis ulcerative [Recovered/Resolved]
  - Migraine [Unknown]
  - Chills [Unknown]
  - Upper-airway cough syndrome [Unknown]
  - Product use issue [Unknown]
  - Lacrimation increased [Unknown]
  - Hypertension [Recovered/Resolved]

NARRATIVE: CASE EVENT DATE: 201902
